FAERS Safety Report 4274243-4 (Version None)
Quarter: 2004Q1

REPORT INFORMATION
  Report Type: 
  Country: None (occurrence: None)
  Receive Date: 20040115
  Receipt Date: 20040107
  Transmission Date: 20041129
  Serious: Yes (Other)
  Sender: FDA-Public Use
  Company Number: 2003189700JP

PATIENT
  Age: 79 Year
  Sex: Female
  Weight: 49 kg

DRUGS (12)
  1. CABERGOLINE [Suspect]
     Indication: PARKINSON'S DISEASE
     Dosage: SEE IMAGE
     Route: 048
     Dates: start: 20020213
  2. CABERGOLINE [Suspect]
     Indication: PARKINSON'S DISEASE
     Dosage: SEE IMAGE
     Route: 048
     Dates: start: 20020227
  3. MADOPAR (BENSERAZIDE HYDROCHLORIDE) [Concomitant]
  4. SELEGILINE HYDROCHLORIDE [Concomitant]
  5. NORVASC [Concomitant]
  6. NITOROL [Concomitant]
  7. LANIRAPID (METILDIGOXIN) [Concomitant]
  8. ASPARA K (ASPARTATE POTASSIUM) [Concomitant]
  9. NEO DOPASTON [Concomitant]
  10. TORSEMIDE [Concomitant]
  11. RADONNA [Concomitant]
  12. LASIX [Concomitant]

REACTIONS (4)
  - CARDIAC FAILURE [None]
  - CHOKING [None]
  - FACE OEDEMA [None]
  - WEIGHT INCREASED [None]
